FAERS Safety Report 14008739 (Version 1)
Quarter: 2017Q3

REPORT INFORMATION
  Report Type: Spontaneous
  Country: TR (occurrence: TR)
  Receive Date: 20170925
  Receipt Date: 20170925
  Transmission Date: 20171128
  Serious: Yes (Other)
  Sender: FDA-Public Use
  Company Number: TR-PFIZER INC-2017406493

PATIENT
  Age: 53 Year
  Sex: Male

DRUGS (3)
  1. CERITINIB [Concomitant]
     Active Substance: CERITINIB
     Indication: ADENOCARCINOMA
     Dosage: UNK
  2. XALKORI [Suspect]
     Active Substance: CRIZOTINIB
     Indication: ADENOCARCINOMA
     Dosage: UNK
  3. XALKORI [Suspect]
     Active Substance: CRIZOTINIB
     Dosage: 250 MG, GIVEN TWICE
     Dates: start: 201602

REACTIONS (2)
  - Neoplasm progression [Unknown]
  - Hemiparesis [Unknown]
